FAERS Safety Report 24438635 (Version 1)
Quarter: 2024Q4

REPORT INFORMATION
  Report Type: Spontaneous
  Country: US (occurrence: None)
  Receive Date: 20241013
  Receipt Date: 20241013
  Transmission Date: 20250115
  Serious: Yes (Other)
  Sender: Public
  Company Number: None

PATIENT
  Age: 57 Year
  Sex: Female
  Weight: 67.5 kg

DRUGS (1)
  1. SONATA [Suspect]
     Active Substance: ZALEPLON
     Indication: Insomnia
     Route: 048
     Dates: start: 20240701, end: 20240805

REACTIONS (5)
  - Ageusia [None]
  - Dyspepsia [None]
  - Decreased appetite [None]
  - Body temperature abnormal [None]
  - Therapy cessation [None]

NARRATIVE: CASE EVENT DATE: 20240710
